FAERS Safety Report 9787578 (Version 1)
Quarter: 2013Q4

REPORT INFORMATION
  Report Type: Spontaneous
  Country: GB (occurrence: None)
  Receive Date: 20131224
  Receipt Date: 20131224
  Transmission Date: 20140711
  Serious: Yes (Life-Threatening)
  Sender: FDA-Public Use
  Company Number: AUR-APL-2013-10496

PATIENT
  Age: 31 Year
  Sex: Male

DRUGS (3)
  1. MIRTAZAPINE (MIRTAZAPINE) [Suspect]
     Indication: DEPRESSION
     Route: 048
     Dates: start: 20131130
  2. GABAPENTIN (GABAPENTIN) [Suspect]
     Indication: SCIATICA
     Dosage: 2100 MG (700 MG, 3 IN 1 D), ORAL
     Route: 048
     Dates: start: 20131130
  3. METHADONE (METHADONE) [Suspect]
     Indication: OVERDOSE
     Route: 048

REACTIONS (3)
  - Sedation [None]
  - Intentional overdose [None]
  - Loss of consciousness [None]
